FAERS Safety Report 25954792 (Version 1)
Quarter: 2025Q4

REPORT INFORMATION
  Report Type: Spontaneous
  Country: US (occurrence: US)
  Receive Date: 20251024
  Receipt Date: 20251024
  Transmission Date: 20260118
  Serious: No
  Sender: IPSEN BIOPHARMACEUTICALS, INC.
  Company Number: US-IPSEN Group, Research and Development-2025-23480

PATIENT
  Age: 79 Year
  Sex: Female

DRUGS (19)
  1. IQIRVO [Suspect]
     Active Substance: ELAFIBRANOR
     Indication: Primary biliary cholangitis
     Dosage: DAILY
     Route: 048
  2. VITAMIN D3 [Concomitant]
     Active Substance: CHOLECALCIFEROL
  3. ONDANSETRON HYDROCHLORIDE [Concomitant]
     Active Substance: ONDANSETRON HYDROCHLORIDE
  4. METOPROLOL SUCCINATE [Concomitant]
     Active Substance: METOPROLOL SUCCINATE
  5. OMEPRAZOLE [Concomitant]
     Active Substance: OMEPRAZOLE
  6. FLUTICASONE PROPIONATE [Concomitant]
     Active Substance: FLUTICASONE PROPIONATE
  7. REPATHA [Concomitant]
     Active Substance: EVOLOCUMAB
  8. ESTRADIOL [Concomitant]
     Active Substance: ESTRADIOL
  9. CALCIUM GLUCONATE [Concomitant]
     Active Substance: CALCIUM GLUCONATE
  10. BACLOFEN [Concomitant]
     Active Substance: BACLOFEN
  11. CVS MAGNESIUM OXIDE [Concomitant]
  12. VITAMIN C [Concomitant]
     Active Substance: ASCORBIC ACID
  13. ANACIN (ACETAMINOPHEN\ASPIRIN\CAFFEINE) [Concomitant]
     Active Substance: ACETAMINOPHEN\ASPIRIN\CAFFEINE
  14. FIORICET [Concomitant]
     Active Substance: ACETAMINOPHEN\BUTALBITAL\CAFFEINE
  15. RESTORIL [Concomitant]
     Active Substance: TEMAZEPAM
  16. HYALURONATE SODIUM [Concomitant]
     Active Substance: HYALURONATE SODIUM
  17. IPRATROPIUM BROMIDE [Concomitant]
     Active Substance: IPRATROPIUM BROMIDE
  18. RESTASIS [Concomitant]
     Active Substance: CYCLOSPORINE
  19. IBUPROFEN [Concomitant]
     Active Substance: IBUPROFEN

REACTIONS (2)
  - Patient dissatisfaction with treatment [Unknown]
  - Pruritus [Unknown]
